FAERS Safety Report 6095309-2 (Version None)
Quarter: 2009Q1

REPORT INFORMATION
  Report Type: 
  Country: None (occurrence: None)
  Receive Date: 20090227
  Receipt Date: 20080825
  Transmission Date: 20090719
  Serious: No
  Sender: FDA-Public Use
  Company Number: A0713552A

PATIENT
  Age: 66 Year
  Sex: Female

DRUGS (14)
  1. LAMICTAL [Suspect]
     Indication: DEPRESSION
     Dosage: 50MG TWICE PER DAY
     Route: 048
     Dates: start: 20070201
  2. AMBIEN [Concomitant]
  3. CLONAZEPAM [Concomitant]
  4. TOPROL-XL [Concomitant]
  5. CYMBALTA [Concomitant]
  6. ULTRAM [Concomitant]
  7. LEVOTHYROXINE SODIUM [Concomitant]
  8. HYDROCODONE BITARTRATE + ACETAMINOPHEN [Concomitant]
  9. REQUIP [Concomitant]
  10. VITAMIN E [Concomitant]
  11. LUTEIN [Concomitant]
  12. IBUPROFEN [Concomitant]
  13. ZETIA [Concomitant]
  14. AMLODIPINE [Concomitant]

REACTIONS (2)
  - PRURITUS [None]
  - RASH [None]
